FAERS Safety Report 24958499 (Version 1)
Quarter: 2025Q1

REPORT INFORMATION
  Report Type: Report from Study
  Country: CL (occurrence: CL)
  Receive Date: 20250212
  Receipt Date: 20250212
  Transmission Date: 20250408
  Serious: Yes (Other)
  Sender: UCB
  Company Number: CL-UCBSA-2024047950

PATIENT
  Age: 73 Year
  Sex: Male

DRUGS (4)
  1. ROTIGOTINE [Suspect]
     Active Substance: ROTIGOTINE
     Indication: Parkinson^s disease
     Dosage: 8 MILLIGRAM, ONCE DAILY (QD)
     Route: 062
     Dates: start: 20240115, end: 20240922
  2. ROTIGOTINE [Suspect]
     Active Substance: ROTIGOTINE
     Dosage: 6 MILLIGRAM, ONCE DAILY (QD)
     Route: 062
     Dates: start: 20240922, end: 20250131
  3. ROTIGOTINE [Suspect]
     Active Substance: ROTIGOTINE
     Dosage: 4 MILLIGRAM, ONCE DAILY (QD) (SPLITTING 8MG PATCH)
     Route: 062
     Dates: start: 20250201
  4. BENSERAZIDE\LEVODOPA [Concomitant]
     Active Substance: BENSERAZIDE\LEVODOPA
     Indication: Parkinson^s disease

REACTIONS (5)
  - Hallucination [Not Recovered/Not Resolved]
  - Psychotic disorder [Not Recovered/Not Resolved]
  - Gait inability [Not Recovered/Not Resolved]
  - Muscle rigidity [Not Recovered/Not Resolved]
  - Wrong technique in product usage process [Unknown]

NARRATIVE: CASE EVENT DATE: 20240601
